FAERS Safety Report 5984831-2 (Version None)
Quarter: 2008Q4

REPORT INFORMATION
  Report Type: 
  Country: None (occurrence: None)
  Receive Date: 20081202
  Receipt Date: 20081120
  Transmission Date: 20090506
  Serious: No
  Sender: FDA-Public Use
  Company Number: 2008-185790-NL

PATIENT
  Age: 79 Year
  Sex: Male

DRUGS (9)
  1. MIRTAZAPINE [Suspect]
     Indication: DEPRESSION
     Dosage: 30 MG
  2. VENLAFAXINE HCL [Suspect]
     Indication: DEPRESSION
     Dosage: DF/ 75 MG
  3. HYDROCHLOROTHIAZIDE [Concomitant]
  4. ESOMEPRAZOLE MAGNESIUM [Concomitant]
  5. ALLOPURINOL [Concomitant]
  6. LEVODOPA [Concomitant]
  7. METOPROLOL [Concomitant]
  8. ACETYLSALICYLIC ACID SRT [Concomitant]
  9. ENALAPRIL MALEATE [Concomitant]

REACTIONS (23)
  - ABDOMINAL DISCOMFORT [None]
  - ABNORMAL DREAMS [None]
  - ARRHYTHMIA [None]
  - ATRIOVENTRICULAR BLOCK FIRST DEGREE [None]
  - BRADYKINESIA [None]
  - BRAIN STEM SYNDROME [None]
  - CONDITION AGGRAVATED [None]
  - EXAGGERATED STARTLE RESPONSE [None]
  - GAIT DISTURBANCE [None]
  - HYPERHIDROSIS [None]
  - INITIAL INSOMNIA [None]
  - MAJOR DEPRESSION [None]
  - MUSCULOSKELETAL STIFFNESS [None]
  - MYOCLONUS [None]
  - NIGHTMARE [None]
  - NYSTAGMUS [None]
  - RAPID EYE MOVEMENTS SLEEP ABNORMAL [None]
  - RESTLESS LEGS SYNDROME [None]
  - SEBORRHOEA [None]
  - SLEEP APNOEA SYNDROME [None]
  - TRANSIENT ISCHAEMIC ATTACK [None]
  - VENTRICULAR EXTRASYSTOLES [None]
  - VISION BLURRED [None]
